FAERS Safety Report 10510340 (Version 1)
Quarter: 2014Q4

REPORT INFORMATION
  Report Type: Spontaneous
  Country: US (occurrence: None)
  Receive Date: 20141009
  Receipt Date: 20141009
  Transmission Date: 20150528
  Serious: Yes (Hospitalization)
  Sender: FDA-Public Use
  Company Number: None

PATIENT
  Age: 59 Year
  Sex: Male
  Weight: 93 kg

DRUGS (1)
  1. PENICILLIN [Suspect]
     Active Substance: PENICILLIN
     Indication: TOOTH INFECTION
     Dates: start: 20130926, end: 20130928

REACTIONS (4)
  - Dysphagia [None]
  - Angioedema [None]
  - Pharyngeal oedema [None]
  - Swollen tongue [None]

NARRATIVE: CASE EVENT DATE: 20130928
